FAERS Safety Report 14558731 (Version 2)
Quarter: 2018Q1

REPORT INFORMATION
  Report Type: Spontaneous
  Country: US (occurrence: US)
  Receive Date: 20180221
  Receipt Date: 20180309
  Transmission Date: 20180509
  Serious: Yes (Hospitalization)
  Sender: FDA-Public Use
  Company Number: US-FRESENIUS MEDICAL CARE RENAL THERAPIES GROUP-FMC-1802-000326

PATIENT
  Age: 57 Year
  Sex: Female
  Weight: 47 kg

DRUGS (8)
  1. COREG [Concomitant]
     Active Substance: CARVEDILOL
  2. CAPTOPRIL. [Concomitant]
     Active Substance: CAPTOPRIL
  3. EPOGEN [Concomitant]
     Active Substance: ERYTHROPOIETIN
  4. DELFLEX WITH DEXTROSE 1.5% [Suspect]
     Active Substance: CALCIUM CHLORIDE\DEXTROSE\MAGNESIUM CHLORIDE\SODIUM CHLORIDE\SODIUM LACTATE
     Indication: END STAGE RENAL DISEASE
     Route: 033
  5. PHOSLO [Concomitant]
     Active Substance: CALCIUM ACETATE
  6. ERGOCALCIFEROL. [Concomitant]
     Active Substance: ERGOCALCIFEROL
  7. ASPIRIN. [Concomitant]
     Active Substance: ASPIRIN
  8. LORTAB [Concomitant]
     Active Substance: ACETAMINOPHEN\HYDROCODONE BITARTRATE

REACTIONS (2)
  - Incorrect dose administered [Recovered/Resolved]
  - Pulmonary oedema [Recovered/Resolved]

NARRATIVE: CASE EVENT DATE: 20180128
